FAERS Safety Report 9587522 (Version 1)
Quarter: 2013Q4

REPORT INFORMATION
  Report Type: Spontaneous
  Country: IT (occurrence: IT)
  Receive Date: 20131003
  Receipt Date: 20131003
  Transmission Date: 20140711
  Serious: Yes (Hospitalization)
  Sender: FDA-Public Use
  Company Number: IT-TEVA-434284ISR

PATIENT
  Age: 83 Year
  Sex: Male

DRUGS (5)
  1. LANSOPRAZOLO [Suspect]
     Indication: PROPHYLAXIS AGAINST GASTROINTESTINAL ULCER
     Dosage: 30 MILLIGRAM DAILY;
     Route: 048
  2. ACIDO ACETILSALICILICO [Concomitant]
     Indication: ATRIAL FIBRILLATION
  3. CANDESARTAN CILEXETIL / IDROCLOROTIAZIDE [Concomitant]
  4. CARVEDILOLO [Concomitant]
  5. FUROSEMIDE [Concomitant]

REACTIONS (2)
  - Dermatitis bullous [Recovering/Resolving]
  - Oral mucosal blistering [Recovering/Resolving]
